FAERS Safety Report 8275170-8 (Version None)
Quarter: 2012Q2

REPORT INFORMATION
  Report Type: 
  Country: None (occurrence: None)
  Receive Date: 20120411
  Receipt Date: 20120405
  Transmission Date: 20120825
  Serious: Yes (Other)
  Sender: FDA-Public Use
  Company Number: PHHY2012US029803

PATIENT
  Age: 29 Year
  Sex: Male

DRUGS (4)
  1. ARIPIPRAZOLE [Interacting]
     Dosage: 30 MG, DAILY FOR 1 WEEK
  2. HALOPERIDOL [Interacting]
     Dosage: 30 MG, DAILY
  3. HALOPERIDOL [Suspect]
     Dosage: 1 MG, DAILY
  4. SERTRALINE HYDROCHLORIDE [Concomitant]
     Dosage: 100 MG, DAILY

REACTIONS (6)
  - LOOSE ASSOCIATIONS [None]
  - ABNORMAL BEHAVIOUR [None]
  - PSYCHOTIC DISORDER [None]
  - IDEAS OF REFERENCE [None]
  - DRUG INTERACTION [None]
  - BRADYPHRENIA [None]
